FAERS Safety Report 11283102 (Version 1)
Quarter: 2015Q3

REPORT INFORMATION
  Report Type: Spontaneous
  Country: US (occurrence: None)
  Receive Date: 20150717
  Receipt Date: 20150717
  Transmission Date: 20151125
  Serious: No
  Sender: FDA-Public Use
  Company Number: None

PATIENT
  Age: 56 Year
  Sex: Male
  Weight: 84.82 kg

DRUGS (3)
  1. HIGH BLOOD PRESSURE MEDS [Concomitant]
  2. DULOXETINE. [Concomitant]
     Active Substance: DULOXETINE
  3. DULOXETINE. [Suspect]
     Active Substance: DULOXETINE
     Indication: ILL-DEFINED DISORDER
     Dosage: 2
     Route: 048

REACTIONS (6)
  - Somnolence [None]
  - Depression [None]
  - Decreased interest [None]
  - Hypophagia [None]
  - Asthenia [None]
  - Activities of daily living impaired [None]

NARRATIVE: CASE EVENT DATE: 20150716
